FAERS Safety Report 10363130 (Version 1)
Quarter: 2014Q1

REPORT INFORMATION
  Report Type: Spontaneous
  Country: US (occurrence: None)
  Receive Date: 20140306
  Receipt Date: 20140306
  Transmission Date: 20141002
  Serious: Yes (Hospitalization, Other)
  Sender: FDA-Public Use
  Company Number: 163-21880-13074233

PATIENT
  Age: 52 Year
  Sex: Female

DRUGS (10)
  1. REVLIMID [Suspect]
     Indication: PLASMA CELL MYELOMA
     Route: 048
     Dates: start: 20120103
  2. FLORINEF(FLUDROCORTISONE ACETATE)(0.1 MILLIGRAM,  UNKNOWN) [Concomitant]
  3. PRISTIQ(DESVENLAFAXINSUCCINATE) [Concomitant]
  4. AMBIEN(ZOLPIDEM TARTRATE) [Concomitant]
  5. LORCET(VICODIN)(UNKNOWN) [Concomitant]
  6. GABAPENTIN(GABAPENTIN) [Concomitant]
  7. SUDAFED(PSEUDOEPHEDRINE HYDROCHLORIDE) [Concomitant]
  8. ABILIFY(ARIPIPRAZOLE) [Concomitant]
  9. PROPANOLOL(PROPRANOLOL) [Concomitant]
  10. SEROQUEL(QUETIAPINE FUMARATE) [Concomitant]

REACTIONS (1)
  - Neutropenia [None]
